FAERS Safety Report 6527012-6 (Version None)
Quarter: 2009Q4

REPORT INFORMATION
  Report Type: 
  Country: None (occurrence: None)
  Receive Date: 20091229
  Receipt Date: 20091214
  Transmission Date: 20100525
  Serious: Yes (Other)
  Sender: FDA-Public Use
  Company Number: 2009SP041346

PATIENT
  Age: 18 Month
  Sex: Female

DRUGS (1)
  1. LORATADINE [Suspect]
     Indication: SEASONAL ALLERGY
     Dates: start: 20091201, end: 20091201

REACTIONS (3)
  - OEDEMA [None]
  - REACTION TO COLOURING [None]
  - URTICARIA [None]
